FAERS Safety Report 8317419 (Version 4)
Quarter: 2012Q4

REPORT INFORMATION
  Report Type: 
  Country: NO (occurrence: NO)
  Receive Date: 20111230
  Receipt Date: 20120907
  Transmission Date: 20130627
  Serious: Yes (Death)
  Sender: FDA-Public Use
  Company Number: NO-ABBOTT-11P-122-0886975-00

PATIENT
  Age: 29 Year
  Sex: Female

DRUGS (3)
  1. VALPROATE SODIUM [Suspect]
     Indication: EPILEPSY
  2. TOPIRAMATE [Suspect]
     Indication: EPILEPSY
  3. LAMOTRIGINE [Suspect]
     Indication: EPILEPSY

REACTIONS (1)
  - Sudden unexplained death in epilepsy [Fatal]
